FAERS Safety Report 8546545-4 (Version None)
Quarter: 2012Q3

REPORT INFORMATION
  Report Type: 
  Country: None (occurrence: None)
  Receive Date: 20120727
  Receipt Date: 20111222
  Transmission Date: 20120928
  Serious: No
  Sender: FDA-Public Use
  Company Number: US-ASTRAZENECA-2011SE77889

PATIENT
  Age: 76 Year
  Sex: Female
  Weight: 54.4 kg

DRUGS (16)
  1. SEROQUEL [Suspect]
     Indication: BIPOLAR DISORDER
     Route: 048
  2. OMEPRAZOLE [Concomitant]
  3. VIYB [Concomitant]
  4. AMLODIPINE [Concomitant]
     Indication: BLOOD PRESSURE ABNORMAL
  5. TOPROL-XL [Concomitant]
  6. MELOXICAM [Concomitant]
  7. ZOLOFT [Concomitant]
  8. EFFEXOR XR [Concomitant]
  9. LEVOTHYROXINE SODIUM [Concomitant]
  10. BENAZEPRIL HYDROCHLORIDE [Concomitant]
  11. SEROQUEL [Suspect]
     Route: 048
  12. LITHIUM CARBONATE [Concomitant]
  13. SIMVASTATIN [Concomitant]
     Indication: BLOOD CHOLESTEROL INCREASED
  14. TRILEPTAL [Concomitant]
  15. ASPIRIN [Concomitant]
  16. VITAMIN B6 [Concomitant]

REACTIONS (1)
  - MENTAL DISORDER [None]
